FAERS Safety Report 16127430 (Version 1)
Quarter: 2019Q1

REPORT INFORMATION
  Report Type: Spontaneous
  Country: US (occurrence: US)
  Receive Date: 20190328
  Receipt Date: 20190328
  Transmission Date: 20190418
  Serious: No
  Sender: FDA-Public Use
  Company Number: US-PFIZER INC-2019124848

PATIENT
  Age: 44 Year
  Sex: Female
  Weight: 58.1 kg

DRUGS (2)
  1. DEXTROSE. [Concomitant]
     Active Substance: DEXTROSE
     Indication: VEHICLE SOLUTION USE
     Dosage: UNK
     Dates: start: 20190226
  2. IRINOTECAN HCL [Suspect]
     Active Substance: IRINOTECAN HYDROCHLORIDE
     Indication: RECTAL CANCER METASTATIC
     Dosage: 185 MG, UNK
     Route: 042
     Dates: start: 20190226

REACTIONS (3)
  - Dysarthria [Unknown]
  - Hypoaesthesia [Unknown]
  - Neurological symptom [Unknown]
